FAERS Safety Report 5452218-7 (Version None)
Quarter: 2007Q3

REPORT INFORMATION
  Report Type: 
  Country: None (occurrence: None)
  Receive Date: 20070912
  Receipt Date: 20070904
  Transmission Date: 20080115
  Serious: Yes (Death, Other)
  Sender: FDA-Public Use
  Company Number: KADN20070060

PATIENT
  Age: 16 Year
  Sex: Male

DRUGS (3)
  1. MORPHINE [Suspect]
     Dosage: ORAL
     Route: 048
     Dates: end: 20070601
  2. CODEINE SUL TAB [Suspect]
     Dosage: ORAL
     Route: 048
     Dates: end: 20070601
  3. CAFFEINE [Concomitant]

REACTIONS (7)
  - ACCIDENTAL DEATH [None]
  - ACCIDENTAL OVERDOSE [None]
  - ARTERIOSCLEROSIS CORONARY ARTERY [None]
  - ASPIRATION [None]
  - LOSS OF CONSCIOUSNESS [None]
  - PULMONARY OEDEMA [None]
  - VISCERAL CONGESTION [None]
